FAERS Safety Report 12949026 (Version 1)
Quarter: 2016Q4

REPORT INFORMATION
  Report Type: Spontaneous
  Country: US (occurrence: US)
  Receive Date: 20161117
  Receipt Date: 20161117
  Transmission Date: 20170207
  Serious: Yes (Hospitalization)
  Sender: FDA-Public Use
  Company Number: US-CIPLA LTD.-2016US21060

PATIENT

DRUGS (9)
  1. ATORVASTATIN [Suspect]
     Active Substance: ATORVASTATIN
     Dosage: 80 MG, DAILY
     Route: 065
  2. LISINOPRIL. [Suspect]
     Active Substance: LISINOPRIL
     Dosage: 5 MG, DAILY
     Route: 065
  3. TORSEMIDE. [Suspect]
     Active Substance: TORSEMIDE
     Dosage: 5 MG, DAILY
     Route: 065
  4. ASPIRIN. [Suspect]
     Active Substance: ASPIRIN
     Dosage: 81 MG, DAILY
     Route: 065
  5. DIGOXIN. [Suspect]
     Active Substance: DIGOXIN
     Dosage: 0.125 MG, DAILY
     Route: 065
  6. METOPROLOL. [Suspect]
     Active Substance: METOPROLOL
     Dosage: 25 MG, DAILY
     Route: 065
  7. HYDRALAZINE HCL [Suspect]
     Active Substance: HYDRALAZINE HYDROCHLORIDE
     Dosage: 75 MG, TID
     Route: 065
  8. CLOPIDOGREL [Suspect]
     Active Substance: CLOPIDOGREL BISULFATE
     Dosage: 75 MG, DAILY
     Route: 065
  9. ISOSORBIDE MONONITRATE. [Suspect]
     Active Substance: ISOSORBIDE MONONITRATE
     Dosage: 30 MG, DAILY
     Route: 065

REACTIONS (3)
  - Pulmonary alveolar haemorrhage [Recovering/Resolving]
  - Anti-neutrophil cytoplasmic antibody positive vasculitis [Unknown]
  - Glomerulonephritis rapidly progressive [Recovering/Resolving]
